FAERS Safety Report 8905121 (Version 5)
Quarter: 2013Q4

REPORT INFORMATION
  Report Type: Report from Study
  Country: US (occurrence: US)
  Receive Date: 20121109
  Receipt Date: 20131126
  Transmission Date: 20140711
  Serious: Yes (Hospitalization, Other)
  Sender: FDA-Public Use
  Company Number: US-US-EMD SERONO, INC.-7172518

PATIENT
  Age: 43 Year
  Sex: Female

DRUGS (2)
  1. REBIF [Suspect]
     Indication: MULTIPLE SCLEROSIS
     Route: 058
     Dates: start: 20070305
  2. IRON [Concomitant]
     Indication: BLOOD IRON DECREASED
     Dates: start: 2007

REACTIONS (11)
  - Acoustic neuroma [Recovered/Resolved]
  - Spinal decompression [Unknown]
  - Post procedural infection [Unknown]
  - Osteonecrosis [Not Recovered/Not Resolved]
  - Pituitary tumour [Recovered/Resolved]
  - Iron deficiency anaemia [Unknown]
  - Constipation [Unknown]
  - Nasopharyngitis [Recovered/Resolved]
  - Cough [Recovering/Resolving]
  - Injection site pain [Not Recovered/Not Resolved]
  - Influenza like illness [Recovered/Resolved]
